FAERS Safety Report 4608966-1 (Version None)
Quarter: 2005Q1

REPORT INFORMATION
  Report Type: 
  Country: None (occurrence: None)
  Receive Date: 20050310
  Receipt Date: 20050225
  Transmission Date: 20050727
  Serious: Yes (Death, Hospitalization)
  Sender: FDA-Public Use
  Company Number: 2005-BP-03252YA

PATIENT
  Sex: Male

DRUGS (10)
  1. FLOMAX [Suspect]
     Indication: MICTURITION DISORDER
     Dosage: 0.4 MG (NR) PO
     Route: 048
     Dates: start: 20041111, end: 20041119
  2. CICLOSPORIN (CICLOSPORIN) (NR) [Concomitant]
  3. SIMVASTATIN (NR) [Concomitant]
  4. CO-TRIMOXAZOLE (CO-TRIMOXAZOLE) (NR) [Concomitant]
  5. LANSOPRAZOLE (NR) [Concomitant]
  6. PREDNISOLONE (NR) [Concomitant]
  7. ALFACALCIDOL (NR) [Concomitant]
  8. PARACETAMOL (PARACETAMOL) (NR) [Concomitant]
  9. MYCOPHENOLATE SODIUM (MYCOPHENOLATE SODIUM) (NR) [Concomitant]
  10. ACETYLSALICYLIC ACID SRT [Concomitant]

REACTIONS (4)
  - BLOOD POTASSIUM INCREASED [None]
  - CARDIAC ARREST [None]
  - PAIN [None]
  - RHABDOMYOLYSIS [None]
